FAERS Safety Report 23012322 (Version 3)
Quarter: 2025Q1

REPORT INFORMATION
  Report Type: Spontaneous
  Country: US (occurrence: US)
  Receive Date: 20230930
  Receipt Date: 20250222
  Transmission Date: 20250409
  Serious: No
  Sender: SANOFI AVENTIS
  Company Number: US-SA-SAC20230928000653

PATIENT
  Age: 63 Year
  Sex: Female

DRUGS (2)
  1. DUPIXENT [Suspect]
     Active Substance: DUPILUMAB
     Indication: Asthma
     Dosage: 300 MG, QOW
     Route: 058
  2. RESCUE REMEDY [Concomitant]
     Active Substance: HOMEOPATHICS

REACTIONS (5)
  - COVID-19 [Unknown]
  - Influenza [Unknown]
  - Pyrexia [Unknown]
  - Respiratory symptom [Unknown]
  - Illness [Unknown]
